FAERS Safety Report 10341180 (Version 2)
Quarter: 2014Q3

REPORT INFORMATION
  Report Type: Report from Study
  Country: CA (occurrence: CA)
  Receive Date: 20140724
  Receipt Date: 20140724
  Transmission Date: 20150326
  Serious: Yes (Other)
  Sender: FDA-Public Use
  Company Number: CA-ROCHE-1191848

PATIENT
  Age: 46 Year
  Sex: Female
  Weight: 65 kg

DRUGS (5)
  1. ACTEMRA [Suspect]
     Active Substance: TOCILIZUMAB
     Indication: RHEUMATOID ARTHRITIS
     Route: 042
     Dates: start: 20120327, end: 20140702
  2. TRAMADOL [Concomitant]
     Active Substance: TRAMADOL
     Route: 065
  3. PREDNISONE. [Concomitant]
     Active Substance: PREDNISONE
     Route: 065
  4. METHOTREXATE [Concomitant]
     Active Substance: METHOTREXATE
     Route: 065
  5. CELEBREX [Concomitant]
     Active Substance: CELECOXIB
     Route: 065

REACTIONS (12)
  - Skin infection [Recovered/Resolved]
  - Bacterial food poisoning [Unknown]
  - Weight increased [Not Recovered/Not Resolved]
  - Fall [Unknown]
  - Lupus-like syndrome [Not Recovered/Not Resolved]
  - Orthostatic hypotension [Unknown]
  - Vomiting [Recovering/Resolving]
  - Weight decreased [Not Recovered/Not Resolved]
  - Diarrhoea [Unknown]
  - Rib fracture [Unknown]
  - Gastrointestinal disorder [Unknown]
  - Contusion [Unknown]

NARRATIVE: CASE EVENT DATE: 201302
